FAERS Safety Report 4922099-6 (Version None)
Quarter: 2006Q1

REPORT INFORMATION
  Report Type: 
  Country: None (occurrence: None)
  Receive Date: 20060222
  Receipt Date: 20060222
  Transmission Date: 20060701
  Serious: Yes (Hospitalization)
  Sender: FDA-Public Use
  Company Number: None

PATIENT
  Age: 77 Year
  Sex: Female
  Weight: 80.2 kg

DRUGS (13)
  1. EPTIFIBATIDE [Suspect]
     Indication: ANTIPLATELET THERAPY
     Dosage: 2MCG/KG/MIN  IV X 26HR
     Dates: start: 20051006, end: 20051006
  2. ASPIRIN [Suspect]
     Indication: ANTIPLATELET THERAPY
     Dosage: 325 MG PO DAILY
  3. VICODIN [Concomitant]
  4. RYTHMOL [Concomitant]
  5. ACCUPRIL [Concomitant]
  6. PREVACID [Concomitant]
  7. XANAX [Concomitant]
  8. NEURONTIN [Concomitant]
  9. ASPIRIN [Concomitant]
  10. PLAVIX [Concomitant]
  11. REGLAN [Concomitant]
  12. NTG SL [Concomitant]
  13. CATH: HEPARIN, NTG, PLAVIX [Concomitant]

REACTIONS (4)
  - ATRIAL FIBRILLATION [None]
  - HYPOTENSION [None]
  - RETROPERITONEAL HAEMORRHAGE [None]
  - TACHYCARDIA [None]
